FAERS Safety Report 6588657-0 (Version None)
Quarter: 2010Q1

REPORT INFORMATION
  Report Type: 
  Country: None (occurrence: None)
  Receive Date: 20100218
  Receipt Date: 20091123
  Transmission Date: 20100710
  Serious: No
  Sender: FDA-Public Use
  Company Number: US-ALLERGAN-0916534US

PATIENT
  Age: 53 Year
  Sex: Female
  Weight: 79.365 kg

DRUGS (18)
  1. BOTOX COSMETIC [Suspect]
     Indication: HEADACHE
     Dosage: 88 UNITS, SINGLE
     Route: 030
     Dates: start: 20091016, end: 20091016
  2. BOTOX COSMETIC [Suspect]
     Indication: ALOPECIA
     Dosage: 88 UNITS, SINGLE
     Route: 030
     Dates: start: 20081127, end: 20081127
  3. NEURONTIN [Concomitant]
     Indication: MULTIPLE SCLEROSIS
     Dosage: 600 MG, QHS
     Route: 048
  4. NEURONTIN [Concomitant]
     Indication: PAIN IN EXTREMITY
  5. MIRAPEX [Concomitant]
     Indication: MULTIPLE SCLEROSIS
     Dosage: 0.250 MG, QHS
     Route: 048
  6. LIDODERM [Concomitant]
     Indication: MULTIPLE SCLEROSIS
     Dosage: 1 EVERY DAY PRN
     Route: 062
  7. TOPAMAX [Concomitant]
     Indication: MULTIPLE SCLEROSIS
     Dosage: 100 MG, UNK
     Route: 048
  8. TIZANIDINE HCL [Concomitant]
     Indication: MULTIPLE SCLEROSIS
     Dosage: 8 MG, QHS
  9. BACLOFEN [Concomitant]
     Indication: MULTIPLE SCLEROSIS
     Dosage: 20 MG, BID
  10. DETROL LA [Concomitant]
     Indication: MULTIPLE SCLEROSIS
     Dosage: 4 MG CP24, QD
  11. LORAZEPAM [Concomitant]
     Indication: MULTIPLE SCLEROSIS
     Dosage: 1 MG, 1 EVERY DAY AT BEDTIME AS NEEDED
  12. ALENDRONATE SODIUM [Concomitant]
     Indication: MULTIPLE SCLEROSIS
     Dosage: 70 MG, Q WEEK
  13. PROZAC [Concomitant]
     Indication: MULTIPLE SCLEROSIS
     Dosage: 20 MG, QD
  14. BETASERON [Concomitant]
     Indication: MULTIPLE SCLEROSIS
     Dosage: 0.3 MG, SOLR INJECT QOD
  15. VITAMIN D [Concomitant]
     Indication: MULTIPLE SCLEROSIS
     Dosage: 1000 UNITS, QD
  16. MULTIVITAMINES WITH IRON [Concomitant]
     Indication: MULTIPLE SCLEROSIS
     Dosage: UNK
  17. TUMS E-X [Concomitant]
     Indication: MULTIPLE SCLEROSIS
     Dosage: 750 MG, BID
  18. CYMBALTA [Concomitant]
     Indication: MULTIPLE SCLEROSIS
     Dosage: 60 MG, CPEP QD

REACTIONS (3)
  - INCORRECT STORAGE OF DRUG [None]
  - INJECTION SITE PAIN [None]
  - WRONG TECHNIQUE IN DRUG USAGE PROCESS [None]
